FAERS Safety Report 25127304 (Version 1)
Quarter: 2025Q1

REPORT INFORMATION
  Report Type: Spontaneous
  Country: CA (occurrence: CA)
  Receive Date: 20250327
  Receipt Date: 20250327
  Transmission Date: 20250408
  Serious: Yes (Other)
  Sender: CELLTRION
  Company Number: CA-CELLTRION INC.-2025CA008861

PATIENT

DRUGS (10)
  1. YUFLYMA [Suspect]
     Active Substance: ADALIMUMAB-AATY
     Indication: Hidradenitis
  2. ASPIRIN [Concomitant]
     Active Substance: ASPIRIN
     Dates: start: 2010
  3. BETADERM [Concomitant]
     Active Substance: BETAMETHASONE VALERATE
     Dates: start: 20241016
  4. CLINDAMYCIN [Concomitant]
     Active Substance: CLINDAMYCIN
     Dates: start: 20240216
  5. IRON [Concomitant]
     Active Substance: IRON
     Dates: start: 202401
  6. METFORMIN [Concomitant]
     Active Substance: METFORMIN HYDROCHLORIDE
     Dates: start: 2010, end: 202405
  7. METFORMIN [Concomitant]
     Active Substance: METFORMIN HYDROCHLORIDE
     Dates: start: 202405
  8. RIFAMPIN [Concomitant]
     Active Substance: RIFAMPIN
     Dates: start: 20240216
  9. SEPTRA [Concomitant]
     Active Substance: SULFAMETHOXAZOLE\TRIMETHOPRIM
     Dates: start: 202310, end: 20231205
  10. VITAMIN D NOS [Concomitant]
     Active Substance: CHOLECALCIFEROL\ERGOCALCIFEROL
     Dates: start: 2014

REACTIONS (2)
  - Skin lesion removal [Recovered/Resolved]
  - Drug ineffective [Unknown]

NARRATIVE: CASE EVENT DATE: 20250212
